FAERS Safety Report 7718084-1 (Version None)
Quarter: 2011Q3

REPORT INFORMATION
  Report Type: 
  Country: None (occurrence: None)
  Receive Date: 20110830
  Receipt Date: 20110823
  Transmission Date: 20111222
  Serious: Yes (Hospitalization, Other)
  Sender: FDA-Public Use
  Company Number: FR-PFIZER INC-2011194543

PATIENT
  Age: 83 Year
  Sex: Male

DRUGS (8)
  1. XANAX [Suspect]
     Indication: DEPRESSION
     Dosage: UNK
     Route: 048
     Dates: start: 20110701, end: 20110719
  2. ESCITALOPRAM [Suspect]
     Indication: DEPRESSION
     Dosage: UNK
     Route: 048
     Dates: start: 20110701, end: 20110719
  3. METOPROLOL TARTRATE [Concomitant]
     Dosage: 100 MG, UNK
     Route: 048
  4. NEXIUM [Concomitant]
     Dosage: 20 MG, UNK
  5. ASPIRIN [Concomitant]
     Dosage: 75 MG, UNK
     Route: 048
  6. PLAVIX [Concomitant]
     Dosage: 75 MG, UNK
     Route: 048
  7. RAMIPRIL [Concomitant]
     Dosage: 1.25 MG, 1X/DAY
     Route: 048
  8. ATORVASTATIN CALCIUM [Concomitant]
     Dosage: 10 MG, 1X/DAY
     Route: 048

REACTIONS (4)
  - FEBRILE NEUTROPENIA [None]
  - WALDENSTROM'S MACROGLOBULINAEMIA [None]
  - AGRANULOCYTOSIS [None]
  - ANAEMIA [None]
